FAERS Safety Report 5640892-1 (Version None)
Quarter: 2008Q1

REPORT INFORMATION
  Report Type: 
  Country: None (occurrence: None)
  Receive Date: 20080225
  Receipt Date: 20080214
  Transmission Date: 20080703
  Serious: Yes (Hospitalization)
  Sender: FDA-Public Use
  Company Number: A0709963A

PATIENT
  Age: 73 Year
  Sex: Male

DRUGS (10)
  1. COREG [Suspect]
     Indication: CARDIAC DISORDER
     Dosage: 12.5 MG / PER DAY / UNKNOWN
  2. CARVEDILOL [Suspect]
     Indication: CARDIAC DISORDER
  3. PREDNISONE TAB [Concomitant]
  4. LEVOTHYROXINE SODIUM [Concomitant]
  5. FRUSEMIDE [Concomitant]
  6. POTASSIUM SALT [Concomitant]
  7. FERROUS SULFATE TAB [Concomitant]
  8. ASPIRIN [Concomitant]
  9. DILTIAZEM HYDROCHLORIDE [Concomitant]
  10. OXYGEN [Concomitant]

REACTIONS (4)
  - DYSPNOEA [None]
  - INFLAMMATION [None]
  - PHARMACEUTICAL PRODUCT COMPLAINT [None]
  - PULMONARY OEDEMA [None]
